FAERS Safety Report 9494761 (Version 1)
Quarter: 2013Q3

REPORT INFORMATION
  Report Type: Spontaneous
  Country: US (occurrence: None)
  Receive Date: 20130830
  Receipt Date: 20130830
  Transmission Date: 20140515
  Serious: No
  Sender: FDA-Public Use
  Company Number: None

PATIENT
  Age: 72 Year
  Sex: Male
  Weight: 110.5 kg

DRUGS (2)
  1. TICAGRELOR [Suspect]
     Indication: CEREBROVASCULAR ACCIDENT PROPHYLAXIS
     Dosage: 90 MG BID PO
     Route: 048
     Dates: start: 20130303, end: 20130516
  2. TICAGRELOR [Suspect]
     Indication: CARDIAC FAILURE CONGESTIVE
     Dosage: 90 MG BID PO
     Route: 048
     Dates: start: 20130303, end: 20130516

REACTIONS (1)
  - Dyspnoea [None]
